FAERS Safety Report 16515646 (Version 1)
Quarter: 2019Q3

REPORT INFORMATION
  Report Type: Spontaneous
  Country: US (occurrence: US)
  Receive Date: 20190702
  Receipt Date: 20190702
  Transmission Date: 20191004
  Serious: Yes (Life-Threatening, Other)
  Sender: FDA-Public Use
  Company Number: US-PFIZER INC-2019269153

PATIENT
  Age: 61 Year
  Sex: Male
  Weight: 91.17 kg

DRUGS (15)
  1. INSULIN [Concomitant]
     Active Substance: INSULIN NOS
     Indication: VASCULAR GRAFT
     Dosage: UNK
     Route: 048
  2. ASPIRIN [ACETYLSALICYLIC ACID] [Concomitant]
     Active Substance: ASPIRIN
     Indication: CATHETERISATION CARDIAC
  3. ASPIRIN [ACETYLSALICYLIC ACID] [Concomitant]
     Active Substance: ASPIRIN
     Indication: VASCULAR GRAFT
     Dosage: UNK
     Route: 048
  4. IMDUR [Concomitant]
     Active Substance: ISOSORBIDE MONONITRATE
     Indication: VASCULAR GRAFT
     Dosage: UNK
     Route: 048
  5. CALCIUM [Concomitant]
     Active Substance: CALCIUM
     Indication: CATHETERISATION CARDIAC
  6. METOPROLOL. [Concomitant]
     Active Substance: METOPROLOL
     Indication: CATHETERISATION CARDIAC
  7. INSULIN [Concomitant]
     Active Substance: INSULIN NOS
     Indication: CATHETERISATION CARDIAC
  8. CALCIUM [Concomitant]
     Active Substance: CALCIUM
     Indication: VASCULAR GRAFT
     Dosage: UNK
     Route: 048
  9. LISINOPRIL. [Concomitant]
     Active Substance: LISINOPRIL
     Indication: VASCULAR GRAFT
     Dosage: UNK
     Route: 048
  10. VIAGRA [Suspect]
     Active Substance: SILDENAFIL CITRATE
     Indication: ERECTILE DYSFUNCTION
     Dosage: 25 MG, AS NEEDED (ONE HOUR BEFORE SEXUAL ACTIVITY AS NEEDED )
     Route: 048
  11. IMDUR [Concomitant]
     Active Substance: ISOSORBIDE MONONITRATE
     Indication: CATHETERISATION CARDIAC
  12. ATORVASTATIN [Concomitant]
     Active Substance: ATORVASTATIN
     Indication: CATHETERISATION CARDIAC
  13. METOPROLOL. [Concomitant]
     Active Substance: METOPROLOL
     Indication: VASCULAR GRAFT
     Dosage: UNK
     Route: 048
  14. LISINOPRIL. [Concomitant]
     Active Substance: LISINOPRIL
     Indication: CATHETERISATION CARDIAC
  15. ATORVASTATIN [Concomitant]
     Active Substance: ATORVASTATIN
     Indication: VASCULAR GRAFT
     Dosage: UNK
     Route: 048

REACTIONS (21)
  - Mitral valve incompetence [Unknown]
  - Hepatic function abnormal [Unknown]
  - Hypertension [Unknown]
  - Memory impairment [Unknown]
  - Diabetes mellitus [Unknown]
  - Obesity [Unknown]
  - Atrioventricular block [Unknown]
  - Chronic kidney disease [Unknown]
  - Cardiac failure congestive [Unknown]
  - Mitral valve disease [Unknown]
  - Hepatitis B [Unknown]
  - Renal disorder [Unknown]
  - Visual impairment [Unknown]
  - Sexual dysfunction [Unknown]
  - Wrong patient received product [Unknown]
  - Angina pectoris [Unknown]
  - Sensory loss [Unknown]
  - Tricuspid valve incompetence [Unknown]
  - Mitral valve stenosis [Unknown]
  - Coronary artery disease [Unknown]
  - Hypertriglyceridaemia [Unknown]

NARRATIVE: CASE EVENT DATE: 201811
